FAERS Safety Report 17635423 (Version 1)
Quarter: 2020Q2

REPORT INFORMATION
  Report Type: Spontaneous
  Country: RU (occurrence: RU)
  Receive Date: 20200406
  Receipt Date: 20200406
  Transmission Date: 20200713
  Serious: Yes (Other)
  Sender: FDA-Public Use
  Company Number: RU-BIOMARINAP-RU-2020-129432

PATIENT
  Age: 3 Month
  Sex: Female

DRUGS (1)
  1. BRINEURA [Suspect]
     Active Substance: CERLIPONASE ALFA
     Indication: NEURONAL CEROID LIPOFUSCINOSIS
     Dosage: UNK
     Route: 020
     Dates: start: 20191128

REACTIONS (3)
  - Bradycardia [Not Recovered/Not Resolved]
  - Hypotonia [Not Recovered/Not Resolved]
  - General physical health deterioration [Not Recovered/Not Resolved]

NARRATIVE: CASE EVENT DATE: 20200318
